FAERS Safety Report 4277934-4 (Version None)
Quarter: 2004Q1

REPORT INFORMATION
  Report Type: 
  Country: None (occurrence: None)
  Receive Date: 20040122
  Receipt Date: 20040122
  Transmission Date: 20041129
  Serious: Yes (Other)
  Sender: FDA-Public Use
  Company Number: None

PATIENT
  Age: 50 Year
  Sex: Male
  Weight: 107.0489 kg

DRUGS (3)
  1. ZOCOR [Suspect]
     Indication: CORONARY ARTERY ATHEROSCLEROSIS
     Dosage: 40 MG  PO
     Route: 048
     Dates: start: 19980101, end: 20030101
  2. ZOCOR [Suspect]
     Indication: HYPERLIPIDAEMIA
     Dosage: 40 MG  PO
     Route: 048
     Dates: start: 19980101, end: 20030101
  3. LISINOPRIL [Concomitant]

REACTIONS (2)
  - MYALGIA [None]
  - NAIL DISORDER [None]
